FAERS Safety Report 4333377-6 (Version None)
Quarter: 2004Q2

REPORT INFORMATION
  Report Type: 
  Country: None (occurrence: None)
  Receive Date: 20040401
  Receipt Date: 20040322
  Transmission Date: 20050107
  Serious: Yes (Hospitalization, Other)
  Sender: FDA-Public Use
  Company Number: 2004019987

PATIENT
  Age: 25 Year
  Sex: Female
  Weight: 76.2043 kg

DRUGS (2)
  1. RELPAX [Suspect]
     Indication: HEADACHE
     Dosage: ORAL
     Route: 048
     Dates: start: 20040308, end: 20040308
  2. ESCITALOPRAM (ESCITALOPRAM) [Suspect]
     Indication: ILL-DEFINED DISORDER

REACTIONS (3)
  - DRUG INTERACTION [None]
  - HYPOACUSIS [None]
  - TIC [None]
